FAERS Safety Report 7702866-6 (Version None)
Quarter: 2011Q3

REPORT INFORMATION
  Report Type: 
  Country: None (occurrence: None)
  Receive Date: 20110823
  Receipt Date: 20110817
  Transmission Date: 20111222
  Serious: Yes (Other)
  Sender: FDA-Public Use
  Company Number: US-AMGEN-USASP2010012878

PATIENT
  Age: 72 Year
  Sex: Male
  Weight: 90.703 kg

DRUGS (18)
  1. NPLATE [Suspect]
     Dosage: UNK UNK, QWK
  2. LIPITOR [Concomitant]
     Dosage: 20 MG, QD
  3. PROVENTIL                          /00139501/ [Concomitant]
     Route: 045
  4. METFORMIN HCL [Concomitant]
     Dosage: 500 MG, QD
  5. NPLATE [Suspect]
     Indication: IDIOPATHIC THROMBOCYTOPENIC PURPURA
     Dosage: 90 A?G, QWK
     Route: 058
     Dates: start: 20101028, end: 20101214
  6. ALFUZOSIN HCL [Concomitant]
     Dosage: 10 MG, QD
  7. HYDROCHLOROTHIAZIDE [Concomitant]
     Dosage: 50 MG, QD
  8. FOLBEE [Concomitant]
     Dosage: UNK UNK, QD
  9. DANAZOL [Concomitant]
     Dosage: 100 MG, BID
  10. NPLATE [Suspect]
  11. COREG [Concomitant]
     Dosage: 25 MG, BID
  12. FERROUS SULFATE TAB [Concomitant]
     Dosage: 324 MG, QD
  13. STOOL SOFTENER [Concomitant]
     Dosage: UNK UNK, BID
  14. NORVASC [Concomitant]
     Dosage: 10 MG, QD
  15. GABAPENTIN [Concomitant]
     Dosage: 300 MG, QD
  16. XALATAN [Concomitant]
     Dosage: UNK UNK, QD
  17. POTASSIUM ACETATE [Concomitant]
     Dosage: 40 MEQ, QD
  18. LISINOPRIL [Concomitant]
     Dosage: 40 MG, QD

REACTIONS (2)
  - PARAPROTEINAEMIA [None]
  - ACUTE MYELOID LEUKAEMIA [None]
